FAERS Safety Report 8976689 (Version 1)
Quarter: 2012Q4

REPORT INFORMATION
  Report Type: Report from Study
  Country: US (occurrence: US)
  Receive Date: 20121220
  Receipt Date: 20121220
  Transmission Date: 20130627
  Serious: Yes (Hospitalization)
  Sender: FDA-Public Use
  Company Number: US-BRISTOL-MYERS SQUIBB COMPANY-17202490

PATIENT
  Age: 48 Year
  Sex: Female

DRUGS (18)
  1. CETUXIMAB [Suspect]
     Indication: THYMOMA
  2. CISPLATIN [Suspect]
     Indication: THYMOMA
  3. CYCLOPHOSPHAMIDE [Suspect]
     Indication: THYMOMA
  4. DOXORUBICIN [Suspect]
     Indication: THYMOMA
  5. ACETAMINOPHEN [Concomitant]
  6. AMLODIPINE [Concomitant]
  7. ASPIRIN [Concomitant]
  8. ATORVASTATIN [Concomitant]
  9. EXENATIDE [Concomitant]
  10. FISH OIL [Concomitant]
  11. INSULIN DETEMIR [Concomitant]
  12. METFORMIN [Concomitant]
  13. MULTIVITAMIN W/IRON [Concomitant]
  14. MYCOPHENOLATE MOFETIL [Concomitant]
  15. NYSTATIN [Concomitant]
  16. OMEPRAZOLE [Concomitant]
  17. OXYCODONE [Concomitant]
  18. PREDNISONE [Concomitant]

REACTIONS (1)
  - Syncope [Unknown]
